FAERS Safety Report 23624504 (Version 1)
Quarter: 2024Q1

REPORT INFORMATION
  Report Type: Spontaneous
  Country: US (occurrence: US)
  Receive Date: 20240313
  Receipt Date: 20240313
  Transmission Date: 20240410
  Serious: No
  Sender: FDA-Public Use
  Company Number: US-BRISTOL-MYERS SQUIBB COMPANY-2024-032518

PATIENT
  Age: 77 Year
  Sex: Male
  Weight: 83.91 kg

DRUGS (1)
  1. REVLIMID [Suspect]
     Active Substance: LENALIDOMIDE
     Indication: Plasma cell myeloma
     Dosage: FREQ : 14 DAYS ON, 14 DAYS OFF
     Route: 048
     Dates: start: 2020

REACTIONS (5)
  - Rash [Unknown]
  - Dry skin [Unknown]
  - Scab [Unknown]
  - Off label use [Unknown]
  - Erythema [Unknown]
